FAERS Safety Report 25990275 (Version 1)
Quarter: 2025Q4

REPORT INFORMATION
  Report Type: Spontaneous
  Country: US (occurrence: None)
  Receive Date: 20251103
  Receipt Date: 20251103
  Transmission Date: 20260119
  Serious: No
  Sender: FDA-CTU
  Company Number: None

PATIENT
  Age: 54 Year
  Sex: Female

DRUGS (7)
  1. EVENITY [Suspect]
     Active Substance: ROMOSOZUMAB-AQQG
     Indication: Osteoporosis
     Dates: start: 20250709
  2. QULIPTA [Concomitant]
     Active Substance: ATOGEPANT
  3. MAXALT [Concomitant]
     Active Substance: RIZATRIPTAN BENZOATE
  4. NURTEC ODT [Concomitant]
     Active Substance: RIMEGEPANT SULFATE
  5. elatrita- all PRN [Concomitant]
  6. ESTRADIOL [Concomitant]
     Active Substance: ESTRADIOL
  7. PROGESTERONE [Concomitant]
     Active Substance: PROGESTERONE

REACTIONS (7)
  - Head discomfort [None]
  - Photopsia [None]
  - Photophobia [None]
  - Respiratory tract infection [None]
  - Chills [None]
  - Cough [None]
  - Influenza like illness [None]

NARRATIVE: CASE EVENT DATE: 20251101
